FAERS Safety Report 10166430 (Version 1)
Quarter: 2014Q2

REPORT INFORMATION
  Report Type: Spontaneous
  Country: US (occurrence: US)
  Receive Date: 20140512
  Receipt Date: 20140512
  Transmission Date: 20141212
  Serious: Yes (Hospitalization, Other)
  Sender: FDA-Public Use
  Company Number: US-ROCHE-1395840

PATIENT
  Sex: Male

DRUGS (1)
  1. VALCYTE [Suspect]
     Indication: HEART TRANSPLANT
     Route: 065

REACTIONS (12)
  - Cholecystectomy [Unknown]
  - Cytomegalovirus infection [Unknown]
  - Nephrolithiasis [Unknown]
  - Cough [Unknown]
  - Blood pressure increased [Unknown]
  - Epistaxis [Unknown]
  - Irritability [Unknown]
  - Tremor [Unknown]
  - Confusional state [Unknown]
  - Constipation [Unknown]
  - Red blood cell count decreased [Unknown]
  - Pneumonia [Unknown]
